FAERS Safety Report 12194631 (Version 1)
Quarter: 2016Q1

REPORT INFORMATION
  Report Type: Spontaneous
  Country: US (occurrence: None)
  Receive Date: 20160318
  Receipt Date: 20160318
  Transmission Date: 20160526
  Serious: Yes (Disabling)
  Sender: FDA-Public Use
  Company Number: None

PATIENT
  Age: 64 Year
  Sex: Male
  Weight: 104.33 kg

DRUGS (10)
  1. GEODON [Suspect]
     Active Substance: ZIPRASIDONE HYDROCHLORIDE\ZIPRASIDONE MESYLATE
     Indication: SCHIZOAFFECTIVE DISORDER
     Dates: start: 20140501, end: 20140520
  2. VITAMIN D [Concomitant]
     Active Substance: CHOLECALCIFEROL
  3. BUPROPION. [Concomitant]
     Active Substance: BUPROPION
  4. GEODON [Suspect]
     Active Substance: ZIPRASIDONE HYDROCHLORIDE\ZIPRASIDONE MESYLATE
     Indication: DEPRESSION
     Dates: start: 20140501, end: 20140520
  5. EFFEXOR [Concomitant]
     Active Substance: VENLAFAXINE HYDROCHLORIDE
  6. LAMOTRIGINE. [Concomitant]
     Active Substance: LAMOTRIGINE
  7. STELAZINE [Concomitant]
     Active Substance: TRIFLUOPERAZINE HYDROCHLORIDE
  8. ZOLPIDEM [Concomitant]
     Active Substance: ZOLPIDEM\ZOLPIDEM TARTRATE
  9. ATIVAN [Concomitant]
     Active Substance: LORAZEPAM
  10. CALCIUM [Concomitant]
     Active Substance: CALCIUM

REACTIONS (9)
  - Diplopia [None]
  - Insomnia [None]
  - Drug dose omission [None]
  - Sexual dysfunction [None]
  - Temperature intolerance [None]
  - Anxiety [None]
  - Tremor [None]
  - Obsessive thoughts [None]
  - Balance disorder [None]

NARRATIVE: CASE EVENT DATE: 20140515
